FAERS Safety Report 5153353-3 (Version None)
Quarter: 2006Q4

REPORT INFORMATION
  Report Type: 
  Country: None (occurrence: None)
  Receive Date: 20061117
  Receipt Date: 20061113
  Transmission Date: 20070319
  Serious: Yes (Other)
  Sender: FDA-Public Use
  Company Number: US-JNJFOC-20061103816

PATIENT
  Sex: Male
  Weight: 65.77 kg

DRUGS (6)
  1. EXTRA STRENGTH TYLENOL [Suspect]
  2. EXTRA STRENGTH TYLENOL [Suspect]
     Indication: BACK PAIN
     Dosage: DAILY, AS NEEDED
  3. CHEMOTHERAPY [Concomitant]
     Indication: NEOPLASM MALIGNANT
  4. VERAPAMIL [Concomitant]
     Indication: HYPERTENSION
  5. ZOLOFT [Concomitant]
     Indication: DEPRESSION
  6. LIPITOR [Concomitant]
     Indication: BLOOD CHOLESTEROL INCREASED

REACTIONS (1)
  - HEPATIC CANCER METASTATIC [None]
